FAERS Safety Report 15270035 (Version 2)
Quarter: 2018Q3

REPORT INFORMATION
  Report Type: Spontaneous
  Country: US (occurrence: US)
  Receive Date: 20180813
  Receipt Date: 20180816
  Transmission Date: 20181010
  Serious: No
  Sender: FDA-Public Use
  Company Number: US-PFIZER INC-2018322764

PATIENT
  Age: 74 Year
  Sex: Female
  Weight: 68 kg

DRUGS (1)
  1. DAYPRO [Suspect]
     Active Substance: OXAPROZIN
     Indication: ARTHRITIS
     Dosage: UNK
     Route: 048

REACTIONS (2)
  - Abdominal discomfort [Unknown]
  - Drug ineffective [Unknown]
